FAERS Safety Report 18167809 (Version 2)
Quarter: 2020Q4

REPORT INFORMATION
  Report Type: Spontaneous
  Country: NO (occurrence: NO)
  Receive Date: 20200819
  Receipt Date: 20201016
  Transmission Date: 20210113
  Serious: No
  Sender: FDA-Public Use
  Company Number: NO-GLAXOSMITHKLINE-NO2020138186

PATIENT
  Sex: Female

DRUGS (2)
  1. IMIGRAN [Suspect]
     Active Substance: SUMATRIPTAN SUCCINATE
  2. IMIGRAN [Suspect]
     Active Substance: SUMATRIPTAN SUCCINATE
     Indication: PRODUCT USED FOR UNKNOWN INDICATION
     Dosage: UNK

REACTIONS (2)
  - Product complaint [Unknown]
  - Product dose omission issue [Unknown]
